FAERS Safety Report 5254049-X (Version None)
Quarter: 2007Q1

REPORT INFORMATION
  Report Type: 
  Country: None (occurrence: None)
  Receive Date: 20070302
  Receipt Date: 20070220
  Transmission Date: 20070707
  Serious: Yes (Other)
  Sender: FDA-Public Use
  Company Number: IT-AMGEN-UK212388

PATIENT
  Age: 64 Year
  Sex: Female
  Weight: 100 kg

DRUGS (3)
  1. ARANESP [Suspect]
     Indication: RENAL FAILURE CHRONIC
     Route: 058
     Dates: start: 20040501, end: 20061020
  2. EPREX [Suspect]
     Route: 065
     Dates: start: 20061020
  3. VANCOMYCIN HYDROCHLORIDE [Concomitant]

REACTIONS (2)
  - DRUG INEFFECTIVE [None]
  - THERAPEUTIC RESPONSE DECREASED [None]
